FAERS Safety Report 19277979 (Version 2)
Quarter: 2021Q3

REPORT INFORMATION
  Report Type: Report from Study
  Country: US (occurrence: US)
  Receive Date: 20210520
  Receipt Date: 20210722
  Transmission Date: 20211014
  Serious: Yes (Other)
  Sender: FDA-Public Use
  Company Number: US-BIOGEN-2021BI01010979

PATIENT
  Age: 68 Year
  Sex: Female

DRUGS (1)
  1. TYSABRI [Suspect]
     Active Substance: NATALIZUMAB
     Indication: MULTIPLE SCLEROSIS
     Route: 065
     Dates: start: 20110711

REACTIONS (5)
  - Multiple sclerosis relapse [Unknown]
  - Hypertensive urgency [Unknown]
  - Fall [Recovered/Resolved]
  - Dizziness [Unknown]
  - Limb injury [Unknown]

NARRATIVE: CASE EVENT DATE: 20210506
